FAERS Safety Report 9316537 (Version 1)
Quarter: 2013Q2

REPORT INFORMATION
  Report Type: Spontaneous
  Country: US (occurrence: None)
  Receive Date: 20130528
  Receipt Date: 20130528
  Transmission Date: 20140414
  Serious: Yes (Other)
  Sender: FDA-Public Use
  Company Number: None

PATIENT
  Age: 29 Year
  Sex: Female
  Weight: 58.06 kg

DRUGS (1)
  1. DOXYCYCLINE HYCLATE [Suspect]
     Indication: ACNE
     Dosage: 1 CAPSULE
     Route: 048
     Dates: start: 20130519, end: 20130523

REACTIONS (7)
  - Throat irritation [None]
  - Pyrexia [None]
  - Chills [None]
  - Muscle fatigue [None]
  - Pain [None]
  - Rhinorrhoea [None]
  - Chest discomfort [None]
